FAERS Safety Report 5235956-0 (Version None)
Quarter: 2007Q1

REPORT INFORMATION
  Report Type: 
  Country: None (occurrence: None)
  Receive Date: 20070212
  Receipt Date: 20070130
  Transmission Date: 20070707
  Serious: Yes (Other)
  Sender: FDA-Public Use
  Company Number: PHEH2006US15273

PATIENT
  Age: 14 Year
  Sex: Male
  Weight: 35.918 kg

DRUGS (2)
  1. GLEEVEC [Suspect]
     Indication: CHRONIC MYELOID LEUKAEMIA
     Dosage: 400 MG, QD
     Route: 048
     Dates: start: 20051215
  2. SEPTRA DS [Concomitant]
     Indication: PROPHYLAXIS
     Dosage: 1 TABLET, BID
     Route: 048
     Dates: start: 20051221

REACTIONS (5)
  - AMNESIA [None]
  - CONVULSION [None]
  - HEADACHE [None]
  - MUSCLE TWITCHING [None]
  - TOURETTE'S DISORDER [None]
